FAERS Safety Report 25985916 (Version 1)
Quarter: 2025Q4

REPORT INFORMATION
  Report Type: Spontaneous
  Country: GB (occurrence: GB)
  Receive Date: 20251031
  Receipt Date: 20251031
  Transmission Date: 20260117
  Serious: Yes (Other)
  Sender: MYLAN
  Company Number: GB-MHRA-TPP40270156C28132445YC1761220517279

PATIENT
  Age: 46 Year
  Sex: Female
  Weight: 82 kg

DRUGS (60)
  1. AMLODIPINE [Suspect]
     Active Substance: AMLODIPINE BESYLATE
     Indication: Ill-defined disorder
     Dosage: 5 MILLIGRAM, AM (TAKE ONE TABLET IN THE MORNING TO REDUCE BLOOD ...)
     Dates: start: 20250930
  2. AMLODIPINE [Suspect]
     Active Substance: AMLODIPINE BESYLATE
     Dosage: 5 MILLIGRAM, AM (TAKE ONE TABLET IN THE MORNING TO REDUCE BLOOD ...)
     Route: 065
     Dates: start: 20250930
  3. AMLODIPINE [Suspect]
     Active Substance: AMLODIPINE BESYLATE
     Dosage: 5 MILLIGRAM, AM (TAKE ONE TABLET IN THE MORNING TO REDUCE BLOOD ...)
     Route: 065
     Dates: start: 20250930
  4. AMLODIPINE [Suspect]
     Active Substance: AMLODIPINE BESYLATE
     Dosage: 5 MILLIGRAM, AM (TAKE ONE TABLET IN THE MORNING TO REDUCE BLOOD ...)
     Dates: start: 20250930
  5. INDAPAMIDE [Concomitant]
     Active Substance: INDAPAMIDE
     Indication: Ill-defined disorder
     Dosage: 1 DOSAGE FORM, AM (TAKE ONE EACH MORNING)
     Dates: start: 20251008
  6. INDAPAMIDE [Concomitant]
     Active Substance: INDAPAMIDE
     Dosage: 1 DOSAGE FORM, AM (TAKE ONE EACH MORNING)
     Route: 065
     Dates: start: 20251008
  7. INDAPAMIDE [Concomitant]
     Active Substance: INDAPAMIDE
     Dosage: 1 DOSAGE FORM, AM (TAKE ONE EACH MORNING)
     Route: 065
     Dates: start: 20251008
  8. INDAPAMIDE [Concomitant]
     Active Substance: INDAPAMIDE
     Dosage: 1 DOSAGE FORM, AM (TAKE ONE EACH MORNING)
     Dates: start: 20251008
  9. ATORVASTATIN [Concomitant]
     Active Substance: ATORVASTATIN
     Indication: Ill-defined disorder
     Dosage: 1 DOSAGE FORM, QD (ONE TO BE TAKEN EACH DAY)
     Dates: start: 20231025
  10. ATORVASTATIN [Concomitant]
     Active Substance: ATORVASTATIN
     Dosage: 1 DOSAGE FORM, QD (ONE TO BE TAKEN EACH DAY)
     Route: 065
     Dates: start: 20231025
  11. ATORVASTATIN [Concomitant]
     Active Substance: ATORVASTATIN
     Dosage: 1 DOSAGE FORM, QD (ONE TO BE TAKEN EACH DAY)
     Route: 065
     Dates: start: 20231025
  12. ATORVASTATIN [Concomitant]
     Active Substance: ATORVASTATIN
     Dosage: 1 DOSAGE FORM, QD (ONE TO BE TAKEN EACH DAY)
     Dates: start: 20231025
  13. NOVORAPID [Concomitant]
     Active Substance: INSULIN ASPART
     Indication: Ill-defined disorder
     Dosage: UNK (AS DIRECTED)
  14. NOVORAPID [Concomitant]
     Active Substance: INSULIN ASPART
     Dosage: UNK (AS DIRECTED)
     Route: 065
  15. NOVORAPID [Concomitant]
     Active Substance: INSULIN ASPART
     Dosage: UNK (AS DIRECTED)
     Route: 065
  16. NOVORAPID [Concomitant]
     Active Substance: INSULIN ASPART
     Dosage: UNK (AS DIRECTED)
  17. OMEPRAZOLE [Concomitant]
     Active Substance: OMEPRAZOLE
     Indication: Ill-defined disorder
     Dosage: 1 DOSAGE FORM, AM (1 IN THE MORNING BEFORE BREAKFAST)
     Dates: start: 20231025
  18. OMEPRAZOLE [Concomitant]
     Active Substance: OMEPRAZOLE
     Dosage: 1 DOSAGE FORM, AM (1 IN THE MORNING BEFORE BREAKFAST)
     Route: 065
     Dates: start: 20231025
  19. OMEPRAZOLE [Concomitant]
     Active Substance: OMEPRAZOLE
     Dosage: 1 DOSAGE FORM, AM (1 IN THE MORNING BEFORE BREAKFAST)
     Route: 065
     Dates: start: 20231025
  20. OMEPRAZOLE [Concomitant]
     Active Substance: OMEPRAZOLE
     Dosage: 1 DOSAGE FORM, AM (1 IN THE MORNING BEFORE BREAKFAST)
     Dates: start: 20231025
  21. RAMIPRIL [Concomitant]
     Active Substance: RAMIPRIL
     Indication: Ill-defined disorder
     Dosage: 1 DOSAGE FORM, QD (ONE TO BE TAKEN EACH DAY)
     Dates: start: 20231025
  22. RAMIPRIL [Concomitant]
     Active Substance: RAMIPRIL
     Dosage: 1 DOSAGE FORM, QD (ONE TO BE TAKEN EACH DAY)
     Route: 065
     Dates: start: 20231025
  23. RAMIPRIL [Concomitant]
     Active Substance: RAMIPRIL
     Dosage: 1 DOSAGE FORM, QD (ONE TO BE TAKEN EACH DAY)
     Route: 065
     Dates: start: 20231025
  24. RAMIPRIL [Concomitant]
     Active Substance: RAMIPRIL
     Dosage: 1 DOSAGE FORM, QD (ONE TO BE TAKEN EACH DAY)
     Dates: start: 20231025
  25. FLUTICASONE PROPIONATE [Concomitant]
     Active Substance: FLUTICASONE PROPIONATE
     Indication: Ill-defined disorder
     Dosage: 2 DOSAGE FORM, QD (~TWO SPRAYS IN EACH NOSTRIL DAILY)
     Dates: start: 20240516
  26. FLUTICASONE PROPIONATE [Concomitant]
     Active Substance: FLUTICASONE PROPIONATE
     Dosage: 2 DOSAGE FORM, QD (~TWO SPRAYS IN EACH NOSTRIL DAILY)
     Route: 045
     Dates: start: 20240516
  27. FLUTICASONE PROPIONATE [Concomitant]
     Active Substance: FLUTICASONE PROPIONATE
     Dosage: 2 DOSAGE FORM, QD (~TWO SPRAYS IN EACH NOSTRIL DAILY)
     Route: 045
     Dates: start: 20240516
  28. FLUTICASONE PROPIONATE [Concomitant]
     Active Substance: FLUTICASONE PROPIONATE
     Dosage: 2 DOSAGE FORM, QD (~TWO SPRAYS IN EACH NOSTRIL DAILY)
     Dates: start: 20240516
  29. TRESIBA [Concomitant]
     Active Substance: INSULIN DEGLUDEC
     Indication: Ill-defined disorder
     Dosage: UNK (FOR SUBCUTANEOUS INJECTION, ACCORDING TO REQUIR...)
  30. TRESIBA [Concomitant]
     Active Substance: INSULIN DEGLUDEC
     Dosage: UNK (FOR SUBCUTANEOUS INJECTION, ACCORDING TO REQUIR...)
     Route: 058
  31. TRESIBA [Concomitant]
     Active Substance: INSULIN DEGLUDEC
     Dosage: UNK (FOR SUBCUTANEOUS INJECTION, ACCORDING TO REQUIR...)
     Route: 058
  32. TRESIBA [Concomitant]
     Active Substance: INSULIN DEGLUDEC
     Dosage: UNK (FOR SUBCUTANEOUS INJECTION, ACCORDING TO REQUIR...)
  33. CLOBETASONE BUTYRATE [Concomitant]
     Active Substance: CLOBETASONE BUTYRATE
     Indication: Ill-defined disorder
     Dosage: UNK, QD (APPLY THINLY ONCE A DAY TO AFFECTED AREAS, FOR ...)
     Dates: start: 20240827
  34. CLOBETASONE BUTYRATE [Concomitant]
     Active Substance: CLOBETASONE BUTYRATE
     Dosage: UNK, QD (APPLY THINLY ONCE A DAY TO AFFECTED AREAS, FOR ...)
     Route: 065
     Dates: start: 20240827
  35. CLOBETASONE BUTYRATE [Concomitant]
     Active Substance: CLOBETASONE BUTYRATE
     Dosage: UNK, QD (APPLY THINLY ONCE A DAY TO AFFECTED AREAS, FOR ...)
     Route: 065
     Dates: start: 20240827
  36. CLOBETASONE BUTYRATE [Concomitant]
     Active Substance: CLOBETASONE BUTYRATE
     Dosage: UNK, QD (APPLY THINLY ONCE A DAY TO AFFECTED AREAS, FOR ...)
     Dates: start: 20240827
  37. HYPROMELLOSES [Concomitant]
     Active Substance: HYPROMELLOSES
     Indication: Ill-defined disorder
     Dosage: UNK, PRN (INSTILL  TO  EYES AS  OFTEN AS  NEEDED)
  38. HYPROMELLOSES [Concomitant]
     Active Substance: HYPROMELLOSES
     Dosage: UNK, PRN (INSTILL  TO  EYES AS  OFTEN AS  NEEDED)
     Route: 047
  39. HYPROMELLOSES [Concomitant]
     Active Substance: HYPROMELLOSES
     Dosage: UNK, PRN (INSTILL  TO  EYES AS  OFTEN AS  NEEDED)
     Route: 047
  40. HYPROMELLOSES [Concomitant]
     Active Substance: HYPROMELLOSES
     Dosage: UNK, PRN (INSTILL  TO  EYES AS  OFTEN AS  NEEDED)
  41. SERTRALINE [Concomitant]
     Active Substance: SERTRALINE HYDROCHLORIDE
     Indication: Ill-defined disorder
     Dosage: 1 DOSAGE FORM, QD (TAKE ONE TABLET ONCE A DAY)
     Dates: start: 20240827
  42. SERTRALINE [Concomitant]
     Active Substance: SERTRALINE HYDROCHLORIDE
     Dosage: 1 DOSAGE FORM, QD (TAKE ONE TABLET ONCE A DAY)
     Route: 065
     Dates: start: 20240827
  43. SERTRALINE [Concomitant]
     Active Substance: SERTRALINE HYDROCHLORIDE
     Dosage: 1 DOSAGE FORM, QD (TAKE ONE TABLET ONCE A DAY)
     Route: 065
     Dates: start: 20240827
  44. SERTRALINE [Concomitant]
     Active Substance: SERTRALINE HYDROCHLORIDE
     Dosage: 1 DOSAGE FORM, QD (TAKE ONE TABLET ONCE A DAY)
     Dates: start: 20240827
  45. TACROLIMUS [Concomitant]
     Active Substance: TACROLIMUS
     Indication: Ill-defined disorder
     Dosage: UNK, PM (APPLY THINLY ONCE A DAY, AT NIGHT TIME, TO AFFE...)
     Dates: start: 20240827
  46. TACROLIMUS [Concomitant]
     Active Substance: TACROLIMUS
     Dosage: UNK, PM (APPLY THINLY ONCE A DAY, AT NIGHT TIME, TO AFFE...)
     Route: 065
     Dates: start: 20240827
  47. TACROLIMUS [Concomitant]
     Active Substance: TACROLIMUS
     Dosage: UNK, PM (APPLY THINLY ONCE A DAY, AT NIGHT TIME, TO AFFE...)
     Route: 065
     Dates: start: 20240827
  48. TACROLIMUS [Concomitant]
     Active Substance: TACROLIMUS
     Dosage: UNK, PM (APPLY THINLY ONCE A DAY, AT NIGHT TIME, TO AFFE...)
     Dates: start: 20240827
  49. MOMETASONE [Concomitant]
     Active Substance: MOMETASONE
     Indication: Ill-defined disorder
     Dosage: UNK, QD (APPLY DAILY TO BODY FOR 14 DAYS THEN ALTERNATE ...)
     Dates: start: 20250107
  50. MOMETASONE [Concomitant]
     Active Substance: MOMETASONE
     Dosage: UNK, QD (APPLY DAILY TO BODY FOR 14 DAYS THEN ALTERNATE ...)
     Route: 065
     Dates: start: 20250107
  51. MOMETASONE [Concomitant]
     Active Substance: MOMETASONE
     Dosage: UNK, QD (APPLY DAILY TO BODY FOR 14 DAYS THEN ALTERNATE ...)
     Route: 065
     Dates: start: 20250107
  52. MOMETASONE [Concomitant]
     Active Substance: MOMETASONE
     Dosage: UNK, QD (APPLY DAILY TO BODY FOR 14 DAYS THEN ALTERNATE ...)
     Dates: start: 20250107
  53. GLUCAGON [Concomitant]
     Active Substance: GLUCAGON
     Indication: Ill-defined disorder
     Dosage: UNK (USE AS DIRECTED)
  54. GLUCAGON [Concomitant]
     Active Substance: GLUCAGON
     Dosage: UNK (USE AS DIRECTED)
     Route: 065
  55. GLUCAGON [Concomitant]
     Active Substance: GLUCAGON
     Dosage: UNK (USE AS DIRECTED)
     Route: 065
  56. GLUCAGON [Concomitant]
     Active Substance: GLUCAGON
     Dosage: UNK (USE AS DIRECTED)
  57. INSULIN ASPART [Concomitant]
     Active Substance: INSULIN ASPART
     Indication: Ill-defined disorder
     Dosage: UNK (USE AS DIRECTED)
  58. INSULIN ASPART [Concomitant]
     Active Substance: INSULIN ASPART
     Dosage: UNK (USE AS DIRECTED)
     Route: 065
  59. INSULIN ASPART [Concomitant]
     Active Substance: INSULIN ASPART
     Dosage: UNK (USE AS DIRECTED)
     Route: 065
  60. INSULIN ASPART [Concomitant]
     Active Substance: INSULIN ASPART
     Dosage: UNK (USE AS DIRECTED)

REACTIONS (3)
  - Eye swelling [Recovered/Resolved]
  - Peripheral swelling [Recovered/Resolved]
  - Urticaria [Recovered/Resolved]

NARRATIVE: CASE EVENT DATE: 20251023
